FAERS Safety Report 21588070 (Version 1)
Quarter: 2022Q4

REPORT INFORMATION
  Report Type: Report from Study
  Country: US (occurrence: US)
  Receive Date: 20221114
  Receipt Date: 20221114
  Transmission Date: 20230113
  Serious: No
  Sender: FDA-Public Use
  Company Number: US-ABBVIE-4164797

PATIENT
  Sex: Female

DRUGS (4)
  1. RINVOQ [Suspect]
     Active Substance: UPADACITINIB
     Indication: Psoriatic arthropathy
     Route: 048
  2. Pfizer/BioNTec [Concomitant]
     Indication: COVID-19 immunisation
     Route: 030
  3. Pfizer/BioNTec [Concomitant]
     Indication: COVID-19 immunisation
     Route: 030
  4. Pfizer/BioNTec [Concomitant]
     Indication: COVID-19 immunisation
     Route: 030

REACTIONS (2)
  - Psoriasis [Not Recovered/Not Resolved]
  - Drug ineffective [Unknown]
